FAERS Safety Report 5813421-7 (Version None)
Quarter: 2008Q3

REPORT INFORMATION
  Report Type: 
  Country: None (occurrence: None)
  Receive Date: 20080714
  Receipt Date: 20080627
  Transmission Date: 20090109
  Serious: Yes (Death, Hospitalization)
  Sender: FDA-Public Use
  Company Number: 2008AL006825

PATIENT
  Age: 53 Year
  Sex: Female
  Weight: 72.5755 kg

DRUGS (1)
  1. DIGOXIN [Suspect]
     Indication: CARDIAC DISORDER
     Dosage: PO
     Route: 048

REACTIONS (8)
  - ALTERED STATE OF CONSCIOUSNESS [None]
  - CONVULSION [None]
  - FAECES DISCOLOURED [None]
  - GASTRIC DISORDER [None]
  - NAUSEA [None]
  - SEPTIC SHOCK [None]
  - URINARY TRACT INFECTION [None]
  - VOMITING [None]
